FAERS Safety Report 10971506 (Version 1)
Quarter: 2015Q1

REPORT INFORMATION
  Report Type: Spontaneous
  Country: US (occurrence: None)
  Receive Date: 20150330
  Receipt Date: 20150330
  Transmission Date: 20150721
  Serious: Yes (Disabling)
  Sender: FDA-Public Use
  Company Number: None

PATIENT
  Age: 48 Year
  Sex: Male
  Weight: 77.11 kg

DRUGS (5)
  1. LEVOFLOXACIN 500MG ZYDUS [Suspect]
     Active Substance: LEVOFLOXACIN
     Indication: SINUSITIS
     Dosage: 1
     Route: 048
     Dates: start: 20150102, end: 20150105
  2. VITAMIN D [Concomitant]
     Active Substance: CHOLECALCIFEROL
  3. REBIF [Concomitant]
     Active Substance: INTERFERON BETA-1A
  4. JUICE PLUS VITAMINS [Concomitant]
  5. ALEVE [Concomitant]
     Active Substance: NAPROXEN SODIUM

REACTIONS (12)
  - Gait disturbance [None]
  - Fall [None]
  - Muscular weakness [None]
  - Muscle fatigue [None]
  - Nerve injury [None]
  - Hypoaesthesia [None]
  - Coordination abnormal [None]
  - Asthenia [None]
  - Balance disorder [None]
  - Mobility decreased [None]
  - Paraesthesia [None]
  - Sciatica [None]

NARRATIVE: CASE EVENT DATE: 20150102
